FAERS Safety Report 8772529 (Version 4)
Quarter: 2012Q4

REPORT INFORMATION
  Report Type: Report from Study
  Country: US (occurrence: US)
  Receive Date: 20120905
  Receipt Date: 20121029
  Transmission Date: 20130627
  Serious: Yes (Other)
  Sender: FDA-Public Use
  Company Number: US-JNJFOC-20120813767

PATIENT
  Age: 58 Year
  Sex: Male

DRUGS (6)
  1. REMICADE [Suspect]
     Indication: PSORIATIC ARTHROPATHY
     Route: 042
     Dates: start: 20120702
  2. REMICADE [Suspect]
     Indication: PSORIATIC ARTHROPATHY
     Route: 042
     Dates: start: 20110602, end: 20120702
  3. METHOTREXATE [Suspect]
     Indication: PSORIATIC ARTHROPATHY
     Route: 048
     Dates: start: 20110516
  4. METHOTREXATE [Suspect]
     Indication: PSORIATIC ARTHROPATHY
     Route: 048
  5. FOLIC ACID [Concomitant]
     Indication: BLOOD POTASSIUM DECREASED
     Route: 065
  6. KLOR CON [Concomitant]
     Indication: MUSCLE SPASMS
     Route: 065
     Dates: start: 20111102

REACTIONS (19)
  - Infusion related reaction [Unknown]
  - Musculoskeletal stiffness [Recovered/Resolved]
  - Hepatic enzyme increased [Unknown]
  - Platelet count decreased [Unknown]
  - Mean cell volume increased [Unknown]
  - Mean cell haemoglobin increased [Unknown]
  - Skin burning sensation [Unknown]
  - Paraesthesia [Unknown]
  - Fatigue [Recovering/Resolving]
  - Pain [Recovered/Resolved]
  - Hypokinesia [Recovered/Resolved]
  - Oedema peripheral [Recovered/Resolved]
  - Hepatic function abnormal [Recovered/Resolved]
  - Malaise [Recovering/Resolving]
  - Weight decreased [Not Recovered/Not Resolved]
  - Headache [Recovering/Resolving]
  - Nausea [Recovered/Resolved]
  - Tinnitus [Recovering/Resolving]
  - Drug effect decreased [Recovered/Resolved]
